FAERS Safety Report 7619919-3 (Version None)
Quarter: 2011Q3

REPORT INFORMATION
  Report Type: 
  Country: None (occurrence: None)
  Receive Date: 20110719
  Receipt Date: 20110708
  Transmission Date: 20111222
  Serious: Yes (Hospitalization, Other)
  Sender: FDA-Public Use
  Company Number: US-ELI_LILLY_AND_COMPANY-US201107002645

PATIENT
  Age: 93 Year
  Sex: Female

DRUGS (4)
  1. HUMULIN N [Suspect]
     Indication: DIABETES MELLITUS
  2. HUMULIN R [Suspect]
     Indication: DIABETES MELLITUS
     Dosage: UNK, PRN
  3. LANTUS [Concomitant]
     Dosage: UNK
  4. ACTOS [Concomitant]
     Dosage: UNK

REACTIONS (2)
  - EPISTAXIS [None]
  - ASTHENIA [None]
